FAERS Safety Report 25341540 (Version 6)
Quarter: 2025Q2

REPORT INFORMATION
  Report Type: Spontaneous
  Country: US (occurrence: US)
  Receive Date: 20250521
  Receipt Date: 20250613
  Transmission Date: 20250717
  Serious: Yes (Other)
  Sender: Day One Biopharmaceuticals
  Company Number: US-Day One Biopharmaceuticals Inc.-2025US000620

PATIENT

DRUGS (2)
  1. OJEMDA [Suspect]
     Active Substance: TOVORAFENIB
     Indication: Acinar cell carcinoma of pancreas
     Dosage: 500 MG, QW
     Route: 065
     Dates: start: 20250403, end: 20250417
  2. OJEMDA [Suspect]
     Active Substance: TOVORAFENIB
     Dosage: QW
     Route: 065
     Dates: start: 20250501

REACTIONS (5)
  - Spinal fracture [Not Recovered/Not Resolved]
  - Cough [Unknown]
  - Gingival hypertrophy [Recovered/Resolved]
  - Off label use [Unknown]
  - Haemoptysis [Unknown]

NARRATIVE: CASE EVENT DATE: 20250401
